FAERS Safety Report 13205165 (Version 1)
Quarter: 2017Q1

REPORT INFORMATION
  Report Type: Spontaneous
  Country: US (occurrence: US)
  Receive Date: 20170209
  Receipt Date: 20170209
  Transmission Date: 20170428
  Serious: No
  Sender: FDA-Public Use
  Company Number: US-PFIZER INC-2017058967

PATIENT
  Age: 46 Year
  Sex: Female
  Weight: 114.76 kg

DRUGS (3)
  1. LYRICA [Suspect]
     Active Substance: PREGABALIN
     Indication: FIBROMYALGIA
     Dosage: 75 MG, 3X/DAY
     Route: 048
     Dates: start: 200404
  2. LYRICA [Suspect]
     Active Substance: PREGABALIN
     Dosage: JUMPS UP FROM THREE TIMES A DAY TO FOUR TIMES A DAY
  3. LYRICA [Suspect]
     Active Substance: PREGABALIN
     Indication: DIABETIC NEUROPATHY
     Dosage: 100 MG, 3X/DAY
     Route: 048
     Dates: start: 20170203

REACTIONS (5)
  - Condition aggravated [Recovering/Resolving]
  - Diabetic neuropathy [Recovering/Resolving]
  - Product use issue [Unknown]
  - Fibromyalgia [Recovering/Resolving]
  - Expired product administered [Unknown]
